FAERS Safety Report 15150533 (Version 2)
Quarter: 2018Q4

REPORT INFORMATION
  Report Type: Report from Study
  Country: JP (occurrence: JP)
  Receive Date: 20180716
  Receipt Date: 20181008
  Transmission Date: 20190204
  Serious: Yes (Death, Other)
  Sender: FDA-Public Use
  Company Number: JP-ASTRAZENECA-2018SE11052

PATIENT
  Age: 80 Year
  Sex: Female

DRUGS (2)
  1. TAGRISSO [Suspect]
     Active Substance: OSIMERTINIB
     Indication: NON-SMALL CELL LUNG CANCER
     Route: 048
     Dates: start: 20160714, end: 20160809
  2. TAGRISSO [Suspect]
     Active Substance: OSIMERTINIB
     Indication: NON-SMALL CELL LUNG CANCER
     Route: 048
     Dates: start: 20160810, end: 20161031

REACTIONS (4)
  - Cardiac failure acute [Fatal]
  - Decreased appetite [Not Recovered/Not Resolved]
  - Condition aggravated [Unknown]
  - Fall [Unknown]

NARRATIVE: CASE EVENT DATE: 2016
